FAERS Safety Report 6530605-3 (Version None)
Quarter: 2010Q1

REPORT INFORMATION
  Report Type: 
  Country: None (occurrence: None)
  Receive Date: 20100108
  Receipt Date: 20091230
  Transmission Date: 20100710
  Serious: Yes (Hospitalization)
  Sender: FDA-Public Use
  Company Number: US-BIOGENIDEC-2007BI013625

PATIENT
  Age: 45 Year
  Sex: Male
  Weight: 77 kg

DRUGS (2)
  1. AVONEX [Suspect]
     Indication: MULTIPLE SCLEROSIS
     Route: 030
     Dates: start: 19981123
  2. AVONEX [Suspect]
     Route: 030
     Dates: start: 20030825

REACTIONS (10)
  - ARTHRALGIA [None]
  - DEPRESSION [None]
  - FALL [None]
  - FEAR [None]
  - GAIT DISTURBANCE [None]
  - INFLUENZA LIKE ILLNESS [None]
  - INTERVERTEBRAL DISC DISORDER [None]
  - MOBILITY DECREASED [None]
  - PERONEAL NERVE PALSY [None]
  - STRESS [None]
